FAERS Safety Report 21447384 (Version 2)
Quarter: 2022Q4

REPORT INFORMATION
  Report Type: Spontaneous
  Country: US (occurrence: US)
  Receive Date: 20221012
  Receipt Date: 20221013
  Transmission Date: 20230113
  Serious: No
  Sender: FDA-Public Use
  Company Number: US-BRISTOL-MYERS SQUIBB COMPANY-2022-117661

PATIENT
  Age: 66 Year
  Sex: Female
  Weight: 109.3 kg

DRUGS (1)
  1. REVLIMID [Suspect]
     Active Substance: LENALIDOMIDE
     Indication: Refractory cytopenia with multilineage dysplasia
     Dosage: 21D ON 7D OFF
     Route: 048
     Dates: start: 20221005

REACTIONS (4)
  - Diarrhoea [Recovering/Resolving]
  - Dyspnoea [Unknown]
  - Dry skin [Recovering/Resolving]
  - Intentional product use issue [Unknown]

NARRATIVE: CASE EVENT DATE: 20221005
